FAERS Safety Report 13136072 (Version 1)
Quarter: 2017Q1

REPORT INFORMATION
  Report Type: Spontaneous
  Country: FR (occurrence: FR)
  Receive Date: 20170121
  Receipt Date: 20170121
  Transmission Date: 20170428
  Serious: Yes (Hospitalization, Other)
  Sender: FDA-Public Use
  Company Number: FR-BAXTER-2017BAX001528

PATIENT
  Age: 67 Year
  Sex: Female

DRUGS (5)
  1. DEXAMETHASONE. [Suspect]
     Active Substance: DEXAMETHASONE
     Dosage: STRENGTH 20 MG/5 ML, SOLUTION FOR INJECTION IN AMPOULE, CHEMOTHERAPY RESUMED
     Route: 042
     Dates: start: 20170105
  2. ENDOXAN 1000 MG, POUDRE POUR SOLUTION INJECTABLE [Suspect]
     Active Substance: CYCLOPHOSPHAMIDE
     Dosage: CHEMOTHERAPY RESUMED
     Route: 042
     Dates: start: 20170105
  3. VELCADE [Suspect]
     Active Substance: BORTEZOMIB
     Indication: CARDIAC AMYLOIDOSIS
     Dosage: FIRST CHEMOTHERAPY COURSE
     Route: 042
     Dates: start: 20161230
  4. DEXAMETHASONE. [Suspect]
     Active Substance: DEXAMETHASONE
     Indication: PRODUCT USED FOR UNKNOWN INDICATION
     Dosage: STRENGTH 20 MG/5 ML, SOLUTION FOR INJECTION IN AMPOULE, FIRST CHEMOTHERAPY COURSE
     Route: 042
     Dates: start: 20161230
  5. ENDOXAN 1000 MG, POUDRE POUR SOLUTION INJECTABLE [Suspect]
     Active Substance: CYCLOPHOSPHAMIDE
     Indication: PRODUCT USED FOR UNKNOWN INDICATION
     Dosage: FIRST CHEMOTHERAPY COURSE
     Route: 042
     Dates: start: 20161230

REACTIONS (4)
  - Ischaemic stroke [Recovered/Resolved]
  - Cerebral artery thrombosis [Recovering/Resolving]
  - Cardiac disorder [Unknown]
  - Nodule [Unknown]

NARRATIVE: CASE EVENT DATE: 20170102
